FAERS Safety Report 20000714 (Version 1)
Quarter: 2021Q4

REPORT INFORMATION
  Report Type: Spontaneous
  Country: DE (occurrence: DE)
  Receive Date: 20211027
  Receipt Date: 20211027
  Transmission Date: 20220303
  Serious: Yes (Death, Life-Threatening, Hospitalization, Other)
  Sender: FDA-Public Use
  Company Number: DE-AUROBINDO-AUR-APL-2018-030332

PATIENT
  Age: 64 Year
  Sex: Male
  Weight: 80 kg

DRUGS (14)
  1. DICLOFENAC [Suspect]
     Active Substance: DICLOFENAC
     Indication: Pain
     Dosage: 100 MILLIGRAM, ONCE A DAY (50 MG, BID)
     Route: 048
  2. DICLOFENAC [Suspect]
     Active Substance: DICLOFENAC
     Indication: Prophylaxis
     Dosage: 25 MILLIGRAM, DAILY, RECOMMENDED FOR TWO WEEKS POSTOPERATIVELY
     Route: 065
     Dates: start: 20160411, end: 20160428
  3. DICLOFENAC [Suspect]
     Active Substance: DICLOFENAC
     Indication: Extraskeletal ossification
  4. HYDROCHLOROTHIAZIDE\RAMIPRIL [Suspect]
     Active Substance: HYDROCHLOROTHIAZIDE\RAMIPRIL
     Indication: Hypertension
     Dosage: 1 DOSAGE FORM, ONCE A DAY
     Route: 048
  5. HYDROCHLOROTHIAZIDE\RAMIPRIL [Suspect]
     Active Substance: HYDROCHLOROTHIAZIDE\RAMIPRIL
     Dosage: 0.5 DOSAGE FORM, ONCE A DAY
     Route: 048
     Dates: end: 20160428
  6. DIPYRONE [Suspect]
     Active Substance: DIPYRONE
     Indication: Analgesic therapy
     Dosage: 1 GRAM, FOUR TIMES/DAY
     Route: 048
  7. DIPYRONE [Suspect]
     Active Substance: DIPYRONE
     Indication: Hip arthroplasty
     Dosage: 4 GRAM DAILY; 1-1-1-1
     Route: 048
     Dates: start: 20160409, end: 20160428
  8. NOREPINEPHRINE [Suspect]
     Active Substance: NOREPINEPHRINE
     Indication: Tachycardia
     Dosage: UNK, 0.2 ?G/KG BW/MIN
     Route: 065
  9. NOREPINEPHRINE [Suspect]
     Active Substance: NOREPINEPHRINE
     Indication: Arrhythmia
  10. HYDROCHLOROTHIAZIDE\RAMIPRIL [Suspect]
     Active Substance: HYDROCHLOROTHIAZIDE\RAMIPRIL
     Indication: Hypertension
     Dosage: 2 DOSAGE FORM, ONCE A DAY (1 DF, BID)
     Route: 048
  11. BISOPROLOL [Concomitant]
     Active Substance: BISOPROLOL
     Indication: Hypertension
     Dosage: 2.5 MILLIGRAM, ONCE A DAY
     Route: 048
     Dates: end: 20160428
  12. PANTOPRAZOLE [Concomitant]
     Active Substance: PANTOPRAZOLE
     Indication: Prophylaxis
     Dosage: 40 MILLIGRAM, ONCE A DAY
     Route: 048
     Dates: start: 20160411, end: 20160530
  13. PANTOPRAZOLE [Concomitant]
     Active Substance: PANTOPRAZOLE
     Indication: Gastritis prophylaxis
  14. ENOXAPARIN SODIUM [Concomitant]
     Active Substance: ENOXAPARIN SODIUM
     Indication: Product used for unknown indication
     Dosage: 40 MILLIGRAM, ONCE A DAY
     Route: 058
     Dates: start: 20160411, end: 20160428

REACTIONS (26)
  - Agranulocytosis [Fatal]
  - Multiple organ dysfunction syndrome [Fatal]
  - Hepatic function abnormal [Fatal]
  - Renal impairment [Fatal]
  - Septic shock [Fatal]
  - Condition aggravated [Fatal]
  - Respiratory failure [Fatal]
  - Pancytopenia [Fatal]
  - Leptotrichia infection [Fatal]
  - Bacterial infection [Fatal]
  - Platelet function test abnormal [Fatal]
  - Swelling [Unknown]
  - Dysphagia [Unknown]
  - Leukopenia [Unknown]
  - Arrhythmia [Unknown]
  - Anaemia [Unknown]
  - Inflammation [Unknown]
  - Leukocytosis [Unknown]
  - Oropharyngeal pain [Unknown]
  - Dysphonia [Unknown]
  - Restlessness [Unknown]
  - Tachycardia [Unknown]
  - Pulse abnormal [Unknown]
  - Infection [Unknown]
  - Abscess [Unknown]
  - Pyrexia [Unknown]

NARRATIVE: CASE EVENT DATE: 20160429
